FAERS Safety Report 5449528-6 (Version None)
Quarter: 2007Q3

REPORT INFORMATION
  Report Type: 
  Country: None (occurrence: None)
  Receive Date: 20070907
  Receipt Date: 20070827
  Transmission Date: 20080115
  Serious: Yes (Other)
  Sender: FDA-Public Use
  Company Number: 2007AP000955

PATIENT
  Age: 48 Year
  Sex: Female

DRUGS (1)
  1. PAROXETINE HYDROCHLORIDE [Suspect]
     Indication: MAJOR DEPRESSION

REACTIONS (6)
  - ARTHRALGIA [None]
  - CONJUNCTIVAL HYPERAEMIA [None]
  - LEUKOCYTOCLASTIC VASCULITIS [None]
  - MYALGIA [None]
  - NAUSEA [None]
  - PRURITUS [None]
